FAERS Safety Report 18821483 (Version 1)
Quarter: 2021Q1

REPORT INFORMATION
  Report Type: Spontaneous
  Country: ES (occurrence: ES)
  Receive Date: 20210202
  Receipt Date: 20210202
  Transmission Date: 20210419
  Serious: Yes (Other)
  Sender: FDA-Public Use
  Company Number: ES-ASTRAZENECA-2021A018502

PATIENT
  Age: 19 Year
  Sex: Female

DRUGS (6)
  1. SEROQUEL XR [Suspect]
     Active Substance: QUETIAPINE FUMARATE
     Indication: ADJUSTMENT DISORDER WITH DEPRESSED MOOD
     Route: 048
     Dates: start: 20200918, end: 20200930
  2. SEDOTIME [Concomitant]
     Active Substance: KETAZOLAM
     Route: 048
     Dates: start: 20191111
  3. VANDRAL [Concomitant]
     Active Substance: VENLAFAXINE HYDROCHLORIDE
     Route: 048
     Dates: start: 20200708
  4. SEROQUEL XR [Suspect]
     Active Substance: QUETIAPINE FUMARATE
     Indication: ADJUSTMENT DISORDER WITH DEPRESSED MOOD
     Route: 048
     Dates: start: 20200317, end: 20200904
  5. LORMETAZEPAM [Concomitant]
     Active Substance: LORMETAZEPAM
     Route: 048
     Dates: start: 20201006
  6. SEROQUEL XR [Suspect]
     Active Substance: QUETIAPINE FUMARATE
     Indication: ADJUSTMENT DISORDER WITH DEPRESSED MOOD
     Route: 048
     Dates: start: 20200904, end: 20200918

REACTIONS (1)
  - Long QT syndrome [Recovered/Resolved]

NARRATIVE: CASE EVENT DATE: 20200429
